FAERS Safety Report 5763457-X (Version None)
Quarter: 2008Q2

REPORT INFORMATION
  Report Type: 
  Country: None (occurrence: None)
  Receive Date: 20080604
  Receipt Date: 20080604
  Transmission Date: 20081010
  Serious: Yes (Hospitalization)
  Sender: FDA-Public Use
  Company Number: None

PATIENT
  Age: 47 Year
  Sex: Female
  Weight: 75.4 kg

DRUGS (18)
  1. LAPATINIB (IND# 72,323) [Suspect]
     Indication: OVARIAN CANCER
     Dosage: 1000MG PO QD
     Route: 048
     Dates: start: 20071205
  2. CARBOPLATIN [Suspect]
     Dosage: AUC 2 IV
     Route: 042
     Dates: start: 20071205, end: 20080523
  3. TAXOL [Suspect]
     Dosage: 6MG/M2 IV Q3W
     Route: 042
     Dates: start: 20071205, end: 20080523
  4. IMODIUM [Concomitant]
  5. LOMOTIL [Concomitant]
  6. ATIVAN [Concomitant]
  7. COMPAZINE [Concomitant]
  8. ZOFRAN [Concomitant]
  9. NEULASTA [Concomitant]
  10. MAGNESIUM [Concomitant]
  11. AMBIEN [Concomitant]
  12. TYLENOL [Concomitant]
  13. MULTI-VITAMIN [Concomitant]
  14. AFRIN [Concomitant]
  15. LEVAQUIN [Concomitant]
  16. MIRALAX [Concomitant]
  17. LIDOCAINE HCL VISCOUS [Concomitant]
  18. CACLIUM CITRATE [Concomitant]

REACTIONS (1)
  - DIARRHOEA [None]
